FAERS Safety Report 9399270 (Version 1)
Quarter: 2013Q3

REPORT INFORMATION
  Report Type: Spontaneous
  Country: US (occurrence: None)
  Receive Date: 20130709
  Receipt Date: 20130709
  Transmission Date: 20140515
  Serious: Yes (Other)
  Sender: FDA-Public Use
  Company Number: 2013AP006331

PATIENT
  Age: 52 Year
  Sex: Female

DRUGS (2)
  1. ATORVASTATIN [Suspect]
     Indication: HYPERLIPIDAEMIA
  2. SIMVASTATIN [Concomitant]

REACTIONS (1)
  - Stevens-Johnson syndrome [None]
